FAERS Safety Report 6016860-7 (Version None)
Quarter: 2008Q4

REPORT INFORMATION
  Report Type: 
  Country: None (occurrence: None)
  Receive Date: 20081222
  Receipt Date: 20081216
  Transmission Date: 20090506
  Serious: Yes (Other)
  Sender: FDA-Public Use
  Company Number: JP-MERCK-0805USA01311

PATIENT
  Age: 58 Year
  Sex: Male

DRUGS (2)
  1. ZETIA [Suspect]
     Route: 048
     Dates: start: 20070101
  2. ROSUVASTATIN CALCIUM [Concomitant]
     Route: 065
     Dates: start: 20060101

REACTIONS (1)
  - PULMONARY FIBROSIS [None]
